FAERS Safety Report 10014268 (Version 2)
Quarter: 2014Q2

REPORT INFORMATION
  Report Type: Spontaneous
  Country: US (occurrence: US)
  Receive Date: 20140317
  Receipt Date: 20140408
  Transmission Date: 20141212
  Serious: Yes (Other)
  Sender: FDA-Public Use
  Company Number: US-009507513-1402USA008886

PATIENT
  Sex: Male
  Weight: 128.35 kg

DRUGS (18)
  1. ZOCOR [Suspect]
     Route: 048
  2. ZETIA [Concomitant]
     Dosage: TAKE 1 TABLET DAILY
     Route: 048
  3. K-DUR [Concomitant]
     Dosage: TAKE 1 TABLET DAILY
  4. NORVASC [Concomitant]
     Dosage: TAKE 1 TABLET DAILY
     Route: 048
  5. ASPIRIN [Concomitant]
     Dosage: TAKE 325MG DAILY
     Route: 048
  6. LIORESAL [Concomitant]
     Dosage: TAKE 1 TABLET DAILY
     Route: 048
  7. CATAPRES [Concomitant]
     Dosage: TAKE 1 TABLET EVERY EVENING
     Route: 048
  8. CATAPRES [Concomitant]
     Dosage: TAKE 1 TABLET EVERY MORNING
     Route: 048
  9. PLAVIX [Concomitant]
     Dosage: TAKE 1 TABLET DAILY
     Route: 048
  10. FLONASE [Concomitant]
     Dosage: 2 SPRAYS DAILY
     Route: 045
  11. HYDRODIURIL [Concomitant]
     Dosage: TAKE 1 TABLET DAILY
     Route: 048
  12. ACETAMINOPHEN (+) HYDROCODONE BITARTRATE [Concomitant]
     Dosage: TAKE 2 TABLET EVERY 4-6 HOURS AS NEEDED
     Route: 048
  13. ANTIVERT (OLD FORMULA) [Concomitant]
     Dosage: TAKE 1 TABLET  3 TIMES DAILY AS NEEDED
     Route: 048
  14. TOPROL XL TABLETS [Concomitant]
     Dosage: TAKE 1 TABLET DAILY
     Route: 048
  15. DITROPAN [Concomitant]
     Dosage: TAKE 1 TABLET TWICE DAILY
  16. ZANTAC [Concomitant]
     Dosage: TAKE 1 TABLET TWO TIMES DAILY
     Route: 048
  17. CRESTOR [Concomitant]
     Dosage: TAKE 1 TABLET EVERY OTHER DAY
     Route: 048
  18. VIAGRA [Concomitant]
     Indication: ERECTILE DYSFUNCTION
     Dosage: TAKE 1 TABLET DAILY AS NEEDED
     Route: 048

REACTIONS (3)
  - Rhabdomyolysis [Recovering/Resolving]
  - Myalgia [Unknown]
  - Rash generalised [Recovering/Resolving]
